FAERS Safety Report 21877825 (Version 2)
Quarter: 2023Q1

REPORT INFORMATION
  Report Type: Spontaneous
  Country: US (occurrence: US)
  Receive Date: 20230118
  Receipt Date: 20230307
  Transmission Date: 20230418
  Serious: No
  Sender: FDA-Public Use
  Company Number: US-SA-SAC20230117001179

PATIENT
  Age: 64 Year
  Sex: Male

DRUGS (1)
  1. DUPIXENT [Suspect]
     Active Substance: DUPILUMAB
     Indication: Nasal polyps
     Dosage: 300 MG, QOW
     Route: 058
     Dates: start: 202201, end: 20230113

REACTIONS (8)
  - Skin ulcer [Unknown]
  - Antinuclear antibody positive [Unknown]
  - Pain in extremity [Unknown]
  - Vision blurred [Unknown]
  - Epistaxis [Unknown]
  - Erythema nodosum [Unknown]
  - Eosinophil count increased [Unknown]
  - Rash [Unknown]

NARRATIVE: CASE EVENT DATE: 20220501
